FAERS Safety Report 10328947 (Version 1)
Quarter: 2014Q3

REPORT INFORMATION
  Report Type: Spontaneous
  Country: GB (occurrence: GB)
  Receive Date: 20140721
  Receipt Date: 20140721
  Transmission Date: 20150326
  Serious: Yes (Death, Hospitalization)
  Sender: FDA-Public Use
  Company Number: GB-ASTRAZENECA-2014SE52552

PATIENT
  Age: 84 Year
  Sex: Female

DRUGS (15)
  1. CEFALEXIN [Concomitant]
     Active Substance: CEPHALEXIN
  2. METOPROLOL [Concomitant]
     Active Substance: METOPROLOL
  3. TICAGRELOR [Suspect]
     Active Substance: TICAGRELOR
     Indication: ACUTE MYOCARDIAL INFARCTION
     Route: 048
     Dates: start: 20140707, end: 20140707
  4. GLYCERYL TRINITRATE [Concomitant]
     Active Substance: NITROGLYCERIN
  5. FUROSEMIDE. [Concomitant]
     Active Substance: FUROSEMIDE
  6. ISOSORBIDE [Concomitant]
     Active Substance: ISOSORBIDE
  7. ASPIRIN. [Concomitant]
     Active Substance: ASPIRIN
     Indication: ACUTE CORONARY SYNDROME
     Dates: start: 20140707
  8. ATORVASTATIN [Concomitant]
     Active Substance: ATORVASTATIN
  9. DALTEPARIN [Concomitant]
     Active Substance: DALTEPARIN
     Indication: ACUTE CORONARY SYNDROME
     Dates: start: 20140707
  10. DIGOXIN. [Concomitant]
     Active Substance: DIGOXIN
  11. MOXONIDINE [Concomitant]
     Active Substance: MOXONIDINE
  12. PARACETAMOL [Concomitant]
     Active Substance: ACETAMINOPHEN
  13. RAMIPRIL. [Concomitant]
     Active Substance: RAMIPRIL
  14. WARFARIN [Concomitant]
     Active Substance: WARFARIN
     Indication: ATRIAL FIBRILLATION
  15. OMEPRAZOLE. [Concomitant]
     Active Substance: OMEPRAZOLE

REACTIONS (2)
  - Unresponsive to stimuli [Fatal]
  - Cerebral haemorrhage [Fatal]

NARRATIVE: CASE EVENT DATE: 20140708
